FAERS Safety Report 7405689-0 (Version None)
Quarter: 2011Q2

REPORT INFORMATION
  Report Type: 
  Country: None (occurrence: None)
  Receive Date: 20110411
  Receipt Date: 20110405
  Transmission Date: 20111010
  Serious: Yes (Other)
  Sender: FDA-Public Use
  Company Number: US-ROCHE-758675

PATIENT
  Sex: Male
  Weight: 80.3 kg

DRUGS (8)
  1. RIBAVIRIN [Suspect]
     Indication: HEPATITIS C
     Route: 048
     Dates: start: 20101010
  2. CELEXA [Concomitant]
     Indication: DEPRESSION
     Dosage: PRE TREATMENT; DAILY
     Route: 048
  3. REMERON [Concomitant]
  4. WELLBUTRIN [Concomitant]
     Indication: DEPRESSION
     Dosage: PRE TREATMENT; DAILY
     Route: 048
  5. COUMADIN [Concomitant]
  6. PEGASYS [Suspect]
     Indication: HEPATITIS C
     Route: 058
     Dates: start: 20101010
  7. PROCRIT [Concomitant]
  8. LOVENOX [Concomitant]

REACTIONS (2)
  - DEEP VEIN THROMBOSIS [None]
  - SWOLLEN TONGUE [None]
